FAERS Safety Report 15992027 (Version 1)
Quarter: 2019Q1

REPORT INFORMATION
  Report Type: Report from Study
  Country: US (occurrence: US)
  Receive Date: 20190221
  Receipt Date: 20190221
  Transmission Date: 20190418
  Serious: Yes (Other)
  Sender: FDA-Public Use
  Company Number: US-JAZZ-2019-US-001401

PATIENT
  Age: 46 Year
  Sex: Male

DRUGS (2)
  1. XYREM [Suspect]
     Active Substance: SODIUM OXYBATE
     Indication: CATAPLEXY
  2. XYREM [Suspect]
     Active Substance: SODIUM OXYBATE
     Indication: NARCOLEPSY
     Dosage: 2.25 G, BID
     Route: 048
     Dates: start: 20190122, end: 201901

REACTIONS (5)
  - Abdominal pain upper [Unknown]
  - Dyspepsia [Unknown]
  - Diarrhoea [Unknown]
  - Chest discomfort [Unknown]
  - Ulcer [Unknown]

NARRATIVE: CASE EVENT DATE: 201901
